FAERS Safety Report 23164994 (Version 1)
Quarter: 2023Q4

REPORT INFORMATION
  Report Type: Spontaneous
  Country: US (occurrence: None)
  Receive Date: 20231108
  Receipt Date: 20231108
  Transmission Date: 20240110
  Serious: Yes (Other)
  Sender: FDA-Public Use
  Company Number: None

PATIENT
  Age: 63 Year
  Sex: Male
  Weight: 99 kg

DRUGS (18)
  1. RYBELSUS [Suspect]
     Active Substance: SEMAGLUTIDE
     Indication: Type 2 diabetes mellitus
     Dosage: OTHER QUANTITY : 1 TABLET(S);?
     Route: 048
     Dates: start: 20230418, end: 20231108
  2. BRILINTA [Concomitant]
     Active Substance: TICAGRELOR
  3. NEBIVOLOL [Concomitant]
     Active Substance: NEBIVOLOL
  4. EZETIMIBE [Concomitant]
     Active Substance: EZETIMIBE
  5. JARDIANCE [Concomitant]
     Active Substance: EMPAGLIFLOZIN
  6. LEVOTHYROXINE SODIUM [Concomitant]
     Active Substance: LEVOTHYROXINE SODIUM
  7. Metformin Hcl Er 5 [Concomitant]
  8. OMEGA-3-ACID ETHYL ESTERS [Concomitant]
     Active Substance: OMEGA-3-ACID ETHYL ESTERS
  9. REPATHA [Concomitant]
     Active Substance: EVOLOCUMAB
  10. TELMISARTAN [Concomitant]
     Active Substance: TELMISARTAN
  11. TADALAFIL [Concomitant]
     Active Substance: TADALAFIL
  12. ASPIRIN [Concomitant]
     Active Substance: ASPIRIN
  13. Joint Health Triple Strength [Concomitant]
  14. ALPHA LIPOIC ACID [Concomitant]
     Active Substance: .ALPHA.-LIPOIC ACID
  15. MINERALS\VITAMINS [Concomitant]
     Active Substance: MINERALS\VITAMINS
  16. VITAMIN B12 [Concomitant]
     Active Substance: CYANOCOBALAMIN
  17. CHOLECALCIFEROL [Concomitant]
     Active Substance: CHOLECALCIFEROL
  18. PROBIOTICS NOS [Concomitant]
     Active Substance: PROBIOTICS NOS

REACTIONS (3)
  - Therapy change [None]
  - Pancreatitis acute [None]
  - Therapy cessation [None]

NARRATIVE: CASE EVENT DATE: 20231107
